FAERS Safety Report 4456146-5 (Version None)
Quarter: 2004Q3

REPORT INFORMATION
  Report Type: 
  Country: None (occurrence: None)
  Receive Date: 20040920
  Receipt Date: 20040906
  Transmission Date: 20050211
  Serious: Yes (Hospitalization)
  Sender: FDA-Public Use
  Company Number: 2004063043

PATIENT
  Age: 79 Year
  Sex: Male

DRUGS (8)
  1. AMLODIPINE BESYLATE [Suspect]
     Indication: HYPERTENSION
     Dosage: 2.5 MG (2.5 MG, 1 IN 1 D), ORAL
     Route: 048
     Dates: start: 19950201, end: 20030924
  2. ALLOPURINOL [Suspect]
     Indication: HYPERURICAEMIA
     Dosage: 200 MG, (200 MG, 1 IN 1 D), ORAL
     Route: 048
     Dates: start: 19950201, end: 20030924
  3. CILOSTAZOL [Suspect]
     Indication: ATHEROSCLEROSIS OBLITERANS
     Dosage: 100 MG (50 MG, 2 IN 1 D), ORAL
     Route: 048
     Dates: start: 19950201, end: 20030923
  4. ASPIRIN [Suspect]
     Indication: ATRIAL FIBRILLATION
     Dosage: 100 MG (100 MG, 1 IN 1 D), ORAL
     Route: 048
     Dates: start: 19950201, end: 20030924
  5. FUROSEMIDE [Concomitant]
  6. DIGOXIN [Concomitant]
  7. INSULIN HUMAN (INSULIN HUMAN) [Concomitant]
  8. NITROGLYCERIN [Concomitant]

REACTIONS (3)
  - HEPATIC FAILURE [None]
  - LIVER DISORDER [None]
  - VIRAL INFECTION [None]
